FAERS Safety Report 8635182 (Version 4)
Quarter: 2012Q4

REPORT INFORMATION
  Report Type: 
  Country: US (occurrence: US)
  Receive Date: 20120626
  Receipt Date: 20120917
  Transmission Date: 20130627
  Serious: Yes (Death, Hospitalization, Other)
  Sender: FDA-Public Use
  Company Number: US-ACTELION-A-US2012-67390

PATIENT
  Age: 70 Year
  Sex: Female

DRUGS (2)
  1. TRACLEER [Suspect]
     Indication: PULMONARY ARTERIAL HYPERTENSION
     Dosage: UNK
     Route: 048
     Dates: end: 20120829
  2. SILDENAFIL [Concomitant]

REACTIONS (9)
  - Respiratory failure [Fatal]
  - Organ failure [Unknown]
  - Pulmonary oedema [Recovered/Resolved]
  - Pneumonia [Recovered/Resolved]
  - Dyspnoea [Unknown]
  - Hepatic failure [Unknown]
  - Pulmonary arterial hypertension [Not Recovered/Not Resolved]
  - Fatigue [Unknown]
  - Gastrointestinal infection [Unknown]
